FAERS Safety Report 8811967 (Version 1)
Quarter: 2012Q4

REPORT INFORMATION
  Report Type: 
  Country: US (occurrence: US)
  Receive Date: 20120927
  Receipt Date: 20120927
  Transmission Date: 20130627
  Serious: Yes (Hospitalization, Other)
  Sender: FDA-Public Use
  Company Number: US-PFIZER INC-2012238472

PATIENT
  Age: 52 Year
  Sex: Female
  Weight: 90.7 kg

DRUGS (23)
  1. LYRICA [Suspect]
     Indication: FIBROMYALGIA
     Dosage: 150 mg, daily
     Dates: start: 201010, end: 201209
  2. CELEXA [Concomitant]
     Indication: DEPRESSION
     Dosage: 40 mg, daily
  3. CELEXA [Concomitant]
     Indication: BIPOLAR DISORDER
  4. SEROQUEL [Concomitant]
     Indication: DEPRESSION
     Dosage: 200 mg, daily
  5. SEROQUEL [Concomitant]
     Indication: SLEEP DISORDER
  6. LEVOTHYROXINE [Concomitant]
     Indication: BASEDOW^S DISEASE
     Dosage: 100 ug, daily
  7. TRILIPIX [Concomitant]
     Indication: BLOOD CHOLESTEROL INCREASED
     Dosage: 135 mg, daily
  8. CRESTOR [Concomitant]
     Indication: BLOOD CHOLESTEROL INCREASED
     Dosage: 10 mg, daily
  9. CRESTOR [Concomitant]
     Indication: BLOOD TRIGLYCERIDES INCREASED
  10. LISINOPRIL [Concomitant]
     Indication: BLOOD CHOLESTEROL INCREASED
     Dosage: 140 mg, daily
  11. LISINOPRIL [Concomitant]
     Indication: BLOOD TRIGLYCERIDES INCREASED
  12. METOPROLOL TARTRATE [Concomitant]
     Indication: HYPERTENSION
     Dosage: 25 mg, daily
  13. METOPROLOL TARTRATE [Concomitant]
     Indication: BLOOD CHOLESTEROL INCREASED
  14. ACETYLSALICYLIC ACID [Concomitant]
     Indication: HYPERTENSION
     Dosage: 81 mg, daily
  15. ACETYLSALICYLIC ACID [Concomitant]
     Indication: BLOOD CHOLESTEROL INCREASED
  16. HYDROCHLOROTHIAZIDE/TRIAMTERENE [Concomitant]
     Indication: BLOOD CHOLESTEROL INCREASED
     Dosage: UNK
  17. HYDROCHLOROTHIAZIDE/TRIAMTERENE [Concomitant]
     Indication: HYPERTENSION
  18. XANAX [Concomitant]
     Indication: ANXIETY
     Dosage: 0.5 mg, daily
  19. XANAX [Concomitant]
     Indication: AGGRESSION
  20. WELLBUTRIN [Concomitant]
     Indication: ANXIETY
     Dosage: 150 mg, daily
  21. WELLBUTRIN [Concomitant]
     Indication: AGGRESSION
  22. REMERON [Concomitant]
     Dosage: 75 mg, daily
  23. SYMBICORT [Concomitant]
     Indication: ASTHMA
     Dosage: UNK

REACTIONS (6)
  - Cardiac disorder [Unknown]
  - Hypertension [Unknown]
  - Renal disorder [Unknown]
  - Fibromyalgia [Unknown]
  - Alanine aminotransferase decreased [Unknown]
  - Aspartate aminotransferase decreased [Unknown]
